FAERS Safety Report 11055422 (Version 1)
Quarter: 2015Q2

REPORT INFORMATION
  Report Type: Spontaneous
  Country: US (occurrence: None)
  Receive Date: 20150421
  Receipt Date: 20150421
  Transmission Date: 20150821
  Serious: No
  Sender: FDA-Public Use
  Company Number: None

PATIENT
  Age: 21 Day
  Sex: Female
  Weight: 61.24 kg

DRUGS (9)
  1. YELLOW DOCK [Concomitant]
     Active Substance: RUMEX CRISPUS POLLEN
  2. AMLODIPINE [Concomitant]
     Active Substance: AMLODIPINE BESYLATE
  3. FENOFIBRATE. [Concomitant]
     Active Substance: FENOFIBRATE
  4. CELECOXIB. [Suspect]
     Active Substance: CELECOXIB
     Indication: ARTHRITIS
     Dosage: 1 CAPSULE BID
     Route: 048
     Dates: start: 20150101, end: 20150420
  5. SPIROLACTONE/HCT [Concomitant]
  6. PLAVIX [Concomitant]
     Active Substance: CLOPIDOGREL BISULFATE
  7. DANDELION [Concomitant]
     Active Substance: TARAXACUM OFFICINALE POLLEN
  8. PRAVASTATIN [Concomitant]
     Active Substance: PRAVASTATIN\PRAVASTATIN SODIUM
  9. MILK THISTLE [Concomitant]
     Active Substance: MILK THISTLE

REACTIONS (3)
  - Gastrointestinal disorder [None]
  - Drug ineffective [None]
  - Product substitution issue [None]

NARRATIVE: CASE EVENT DATE: 20150420
